FAERS Safety Report 9440919 (Version 1)
Quarter: 2013Q3

REPORT INFORMATION
  Report Type: Report from Study
  Country: EC (occurrence: EC)
  Receive Date: 20130805
  Receipt Date: 20130805
  Transmission Date: 20140515
  Serious: Yes (Other)
  Sender: FDA-Public Use
  Company Number: PHHY2013EC083296

PATIENT
  Age: 66 Year
  Sex: Male

DRUGS (6)
  1. EXFORGE [Suspect]
     Indication: HYPERTENSION
     Dosage: 1 DF (160MG VALS/ 5MG AMLO), QD
     Route: 048
     Dates: start: 2009
  2. HIGROTON [Suspect]
     Dosage: 1 DF, QD
     Route: 048
     Dates: start: 2009
  3. TRILEPTAL [Concomitant]
     Indication: NERVOUS SYSTEM DISORDER
     Dosage: 300 MG, TID
     Route: 048
     Dates: start: 2009
  4. CARDIOASPIRINA [Concomitant]
     Dosage: 1 DF, QD
     Route: 048
     Dates: start: 2009
  5. BACLOFEN [Concomitant]
     Dosage: 20 MG, BID
     Route: 048
     Dates: start: 2009
  6. TENORMIN [Concomitant]
     Dosage: 100 MG, QD
     Route: 048

REACTIONS (1)
  - Blood pressure systolic increased [Unknown]
